FAERS Safety Report 12804118 (Version 1)
Quarter: 2016Q4

REPORT INFORMATION
  Report Type: Spontaneous
  Country: US (occurrence: US)
  Receive Date: 20161002
  Receipt Date: 20161002
  Transmission Date: 20170207
  Serious: Yes (Hospitalization)
  Sender: FDA-Public Use
  Company Number: None

PATIENT
  Age: 2 Year
  Sex: Female
  Weight: 16.65 kg

DRUGS (2)
  1. BABY TEETHING (HYLAND HOMEOPATHIC) [Suspect]
     Active Substance: HOMEOPATHICS
     Indication: TEETHING
     Dosage: ?          QUANTITY:3 TABLET(S);?
     Route: 048
     Dates: start: 20160919, end: 20160921
  2. STEROID INHALER [Concomitant]

REACTIONS (3)
  - Dyspnoea [None]
  - Use of accessory respiratory muscles [None]
  - Oxygen saturation decreased [None]

NARRATIVE: CASE EVENT DATE: 20160922
